FAERS Safety Report 18349908 (Version 2)
Quarter: 2020Q4

REPORT INFORMATION
  Report Type: Spontaneous
  Country: IL (occurrence: IL)
  Receive Date: 20201006
  Receipt Date: 20201010
  Transmission Date: 20210114
  Serious: Yes (Other)
  Sender: FDA-Public Use
  Company Number: IL-ROCHE-2689755

PATIENT
  Age: 48 Year
  Sex: Female

DRUGS (1)
  1. XOLAIR [Suspect]
     Active Substance: OMALIZUMAB
     Indication: CHRONIC SPONTANEOUS URTICARIA
     Route: 065
     Dates: start: 20200322, end: 20200322

REACTIONS (15)
  - Urticaria [Unknown]
  - Rash [Unknown]
  - Pain in extremity [Recovered/Resolved]
  - Chest discomfort [Unknown]
  - Oedema [Unknown]
  - Asthma [Unknown]
  - Laryngeal disorder [Unknown]
  - Chest pain [Recovered/Resolved]
  - Swelling [Unknown]
  - Wheezing [Recovered/Resolved]
  - Dizziness [Recovered/Resolved]
  - Pruritus [Unknown]
  - Muscle spasms [Unknown]
  - Aphonia [Recovered/Resolved]
  - Dyspnoea [Recovered/Resolved]

NARRATIVE: CASE EVENT DATE: 20200322
